FAERS Safety Report 11567675 (Version 2)
Quarter: 2016Q2

REPORT INFORMATION
  Report Type: Report from Study
  Country: BR (occurrence: BR)
  Receive Date: 20150929
  Receipt Date: 20160421
  Transmission Date: 20160815
  Serious: Yes (Hospitalization)
  Sender: FDA-Public Use
  Company Number: BR-ROCHE-1489830

PATIENT
  Sex: Female
  Weight: 73 kg

DRUGS (7)
  1. OMEPRAZOLE. [Concomitant]
     Active Substance: OMEPRAZOLE
  2. ACTEMRA [Suspect]
     Active Substance: TOCILIZUMAB
     Indication: RHEUMATOID ARTHRITIS
     Route: 042
     Dates: start: 20140826
  3. ACTEMRA [Suspect]
     Active Substance: TOCILIZUMAB
     Dosage: LAST INFUSION ON 01/SEP/2015
     Route: 042
     Dates: start: 201507
  4. GLIFAGE [Concomitant]
     Active Substance: METFORMIN HYDROCHLORIDE
  5. ALPRAZOLAM. [Concomitant]
     Active Substance: ALPRAZOLAM
  6. LOSARTAN. [Concomitant]
     Active Substance: LOSARTAN
  7. METHOTREXATE [Concomitant]
     Active Substance: METHOTREXATE

REACTIONS (4)
  - Nervousness [Not Recovered/Not Resolved]
  - Ear infection [Not Recovered/Not Resolved]
  - Middle ear disorder [Unknown]
  - Pain [Not Recovered/Not Resolved]
